FAERS Safety Report 10559800 (Version 1)
Quarter: 2014Q4

REPORT INFORMATION
  Report Type: Spontaneous
  Country: US (occurrence: None)
  Receive Date: 20141030
  Receipt Date: 20141030
  Transmission Date: 20150529
  Serious: Yes (Hospitalization, Other)
  Sender: FDA-Public Use
  Company Number: AEGR000834

PATIENT
  Age: 22 Year
  Sex: Male
  Weight: 44.4 kg

DRUGS (13)
  1. SPIRONOLACTONE (SPIRONOLACTONE) [Concomitant]
     Active Substance: SPIRONOLACTONE
  2. VITAMIN D (ERGOCALCIFEROL) [Concomitant]
     Active Substance: ERGOCALCIFEROL
  3. OXYCODONE (OXYCODONE HYDROCHLORIDE) [Concomitant]
  4. METOPROLOL (METOPROLOL TARTRATE) [Concomitant]
     Active Substance: METOPROLOL TARTRATE
  5. LISINOPRIL (LISINOPRIL) [Concomitant]
     Active Substance: LISINOPRIL
  6. DIGOXIN (DIGOXIN) [Concomitant]
     Active Substance: DIGOXIN
  7. FUROSEMIDE (FUROSEMIDE) [Concomitant]
     Active Substance: FUROSEMIDE
  8. CHLORHEXIDINE GLUCONATE 0.1% (CHLORHEXIDINE GLUCONATE) [Concomitant]
  9. ZETIA [Concomitant]
     Active Substance: EZETIMIBE
  10. ATORVASTATIN (ATORVASTATIN CALCIUM) [Concomitant]
  11. ASPIRIN. [Concomitant]
     Active Substance: ASPIRIN
  12. JUXTAPID [Suspect]
     Active Substance: LOMITAPIDE MESYLATE
     Indication: TYPE IIA HYPERLIPIDAEMIA
     Route: 048
     Dates: start: 201407, end: 201408
  13. KETOCONAZOLE (KETOCONAZOLE) LOTION (EXCEPT LOTION FOR EYE) [Concomitant]

REACTIONS (1)
  - Cardiac arrest [None]

NARRATIVE: CASE EVENT DATE: 20141015
